FAERS Safety Report 18981559 (Version 2)
Quarter: 2021Q1

REPORT INFORMATION
  Report Type: Other
  Country: JP (occurrence: JP)
  Receive Date: 20210308
  Receipt Date: 20210325
  Transmission Date: 20210420
  Serious: No
  Sender: FDA-Public Use
  Company Number: JP-B.BRAUN MEDICAL INC.-2107706

PATIENT
  Age: 70 Year
  Sex: Male

DRUGS (3)
  1. SODIUM CHLORIDE INJECTION USP 0264?7800?09 [Suspect]
     Active Substance: SODIUM CHLORIDE
     Indication: HYPONATRAEMIA
  2. IPILIMUMAB [Concomitant]
     Active Substance: IPILIMUMAB
  3. NIVOLUMAB [Concomitant]
     Active Substance: NIVOLUMAB

REACTIONS (1)
  - Drug ineffective [None]
